FAERS Safety Report 8010145 (Version 22)
Quarter: 2013Q3

REPORT INFORMATION
  Report Type: Spontaneous
  Country: US (occurrence: US)
  Receive Date: 20110627
  Receipt Date: 20130814
  Transmission Date: 20140515
  Serious: Yes (Hospitalization, Other)
  Sender: FDA-Public Use
  Company Number: PHEH2011US00500

PATIENT
  Sex: Female
  Weight: 144 kg

DRUGS (16)
  1. ZOMETA [Suspect]
     Indication: PLASMA CELL MYELOMA
     Dosage: 4 MG
     Route: 042
  2. AREDIA [Suspect]
     Dosage: 90 MG, QMO
     Route: 042
  3. LOVAZA [Concomitant]
  4. CALCIUM [Concomitant]
  5. ZETIA [Concomitant]
  6. PERPHENAZINE [Concomitant]
  7. PANTOPRAZOLE [Concomitant]
  8. PREMARIN                                /NEZ/ [Concomitant]
  9. DEXAMETHASON ^COPHAR^ [Concomitant]
  10. REVLIMID [Concomitant]
  11. LEUKERAN [Concomitant]
  12. ZOCOR ^DIECKMANN^ [Concomitant]
  13. EFFEXOR [Concomitant]
  14. FUROSEMIDE [Concomitant]
  15. DILTIAZEM [Concomitant]
  16. ASPIRIN ^BAYER^ [Concomitant]

REACTIONS (104)
  - Purulent discharge [Unknown]
  - Bone pain [Unknown]
  - Exostosis of jaw [Unknown]
  - Ligament calcification [Unknown]
  - Lymph node calcification [Unknown]
  - Pathological fracture [Unknown]
  - Sinusitis [Unknown]
  - Amnesia [Unknown]
  - Bone cancer [Unknown]
  - Bone lesion [Unknown]
  - Arthropathy [Unknown]
  - Osteoarthropathy [Unknown]
  - Breast enlargement [Unknown]
  - Medullary thyroid cancer [Unknown]
  - Intervertebral disc degeneration [Unknown]
  - Pulmonary granuloma [Unknown]
  - Lymphoma [Unknown]
  - Chest pain [Unknown]
  - Granuloma [Unknown]
  - Gallbladder disorder [Unknown]
  - Osteolysis [Unknown]
  - Iris atrophy [Unknown]
  - Meibomianitis [Unknown]
  - Tinea capitis [Unknown]
  - Actinic keratosis [Unknown]
  - Neoplasm skin [Unknown]
  - Skin lesion [Unknown]
  - Acarodermatitis [Unknown]
  - Skin papilloma [Unknown]
  - Cataract [Unknown]
  - Floppy iris syndrome [Unknown]
  - Precancerous skin lesion [Unknown]
  - Clostridium difficile infection [Unknown]
  - Oral candidiasis [Unknown]
  - Bacteraemia [Unknown]
  - Stomatitis [Unknown]
  - Urinary tract infection [Unknown]
  - Angina pectoris [Unknown]
  - Osteonecrosis of jaw [Unknown]
  - Pain [Unknown]
  - Infection [Unknown]
  - Deformity [Unknown]
  - Injury [Unknown]
  - Toothache [Unknown]
  - Loose tooth [Unknown]
  - Gingival bleeding [Unknown]
  - Sensitivity of teeth [Unknown]
  - Exposed bone in jaw [Unknown]
  - Osteomyelitis [Unknown]
  - Actinomycosis [Unknown]
  - Emotional distress [Unknown]
  - Bronchitis [Unknown]
  - Spinal compression fracture [Unknown]
  - Intervertebral disc protrusion [Unknown]
  - Plasma cell myeloma [Unknown]
  - Rib fracture [Unknown]
  - Cardiomegaly [Unknown]
  - Breast cyst [Unknown]
  - Rectal haemorrhage [Unknown]
  - Diverticulum [Unknown]
  - Haemorrhoids [Unknown]
  - Dizziness [Unknown]
  - Joint swelling [Unknown]
  - Mitral valve incompetence [Unknown]
  - Arteriosclerosis coronary artery [Unknown]
  - Osteoarthritis [Unknown]
  - Depression [Unknown]
  - Dyspnoea [Unknown]
  - Pulmonary embolism [Unknown]
  - Lung infiltration [Unknown]
  - Chest discomfort [Unknown]
  - Soft tissue mass [Unknown]
  - Neuropathy peripheral [Unknown]
  - Gastrooesophageal reflux disease [Unknown]
  - Intervertebral disc space narrowing [Unknown]
  - Vaginal prolapse [Unknown]
  - Osteoporosis [Unknown]
  - Hypertension [Unknown]
  - Chronic obstructive pulmonary disease [Unknown]
  - Fall [Unknown]
  - Pulmonary mass [Unknown]
  - Thyroid disorder [Unknown]
  - Spinal osteoarthritis [Unknown]
  - Epicondylitis [Unknown]
  - Breast calcifications [Unknown]
  - Osteopenia [Unknown]
  - Scoliosis [Unknown]
  - Tendon calcification [Unknown]
  - Tendonitis [Unknown]
  - Aortic arteriosclerosis [Unknown]
  - Hiatus hernia [Unknown]
  - Pneumonia [Unknown]
  - Pleural fibrosis [Unknown]
  - Anaemia [Unknown]
  - Parakeratosis [Unknown]
  - Fungal infection [Unknown]
  - Dermatophytosis [Unknown]
  - Vision blurred [Unknown]
  - Dysuria [Unknown]
  - Cardiac failure congestive [Unknown]
  - Pulmonary oedema [Unknown]
  - Atrophic vulvovaginitis [Unknown]
  - Osteosclerosis [Unknown]
  - Poor dental condition [Unknown]
